FAERS Safety Report 19710146 (Version 1)
Quarter: 2021Q3

REPORT INFORMATION
  Report Type: Spontaneous
  Country: FR (occurrence: FR)
  Receive Date: 20210816
  Receipt Date: 20210816
  Transmission Date: 20211014
  Serious: Yes (Other)
  Sender: FDA-Public Use
  Company Number: FR-PFIZER INC-202101002798

PATIENT
  Age: 44 Year
  Sex: Male

DRUGS (2)
  1. XANAX [Suspect]
     Active Substance: ALPRAZOLAM
     Dosage: VARIABLE DOSE SEVERAL TIMES A DAY
     Route: 048
  2. GAMMA?BUTYROLACTONE [Suspect]
     Active Substance: BUTYROLACTONE
     Dosage: VARIABLE DOSE SEVERAL TIMES A DAY
     Route: 042

REACTIONS (2)
  - Hyperacusis [Not Recovered/Not Resolved]
  - Drug abuser [Not Recovered/Not Resolved]
